FAERS Safety Report 23673442 (Version 1)
Quarter: 2024Q1

REPORT INFORMATION
  Report Type: Spontaneous
  Country: US (occurrence: US)
  Receive Date: 20240326
  Receipt Date: 20240326
  Transmission Date: 20240410
  Serious: No
  Sender: FDA-Public Use
  Company Number: US-ABBVIE-5685998

PATIENT
  Age: 36 Year
  Sex: Female
  Weight: 66 kg

DRUGS (3)
  1. LATISSE [Suspect]
     Active Substance: BIMATOPROST
     Indication: Growth of eyelashes
     Dosage: FORM STRENGTH: 0.03 PERCENT/BIMATOPROST 0.3MG/ML SOL
     Route: 047
     Dates: start: 20240228, end: 20240308
  2. LATISSE [Suspect]
     Active Substance: BIMATOPROST
     Indication: Eyelash hyperpigmentation
     Dosage: FORM STRENGTH: 0.03 PERCENT /BIMATOPROST 0.3MG/ML SOL
     Route: 047
     Dates: start: 20240220, end: 20240223
  3. LATISSE [Suspect]
     Active Substance: BIMATOPROST
     Indication: Eyelash thickening

REACTIONS (6)
  - Ocular hyperaemia [Recovered/Resolved]
  - Eye irritation [Recovered/Resolved]
  - Ocular hyperaemia [Recovered/Resolved]
  - Skin discolouration [Recovered/Resolved]
  - Skin discolouration [Recovered/Resolved]
  - Eye irritation [Recovered/Resolved]

NARRATIVE: CASE EVENT DATE: 20240222
